APPROVED DRUG PRODUCT: DAPTOMYCIN
Active Ingredient: DAPTOMYCIN
Strength: 350MG/VIAL
Dosage Form/Route: POWDER;INTRAVENOUS
Application: N210282 | Product #001
Applicant: HOSPIRA INC
Approved: Jun 21, 2021 | RLD: Yes | RS: Yes | Type: RX

PATENTS:
Patent 10357535 | Expires: Sep 11, 2033
Patent 9655946 | Expires: Sep 11, 2033